FAERS Safety Report 5721859-1 (Version None)
Quarter: 2008Q2

REPORT INFORMATION
  Report Type: 
  Country: None (occurrence: None)
  Receive Date: 20080429
  Receipt Date: 20080424
  Transmission Date: 20081010
  Serious: Yes (Hospitalization, Other)
  Sender: FDA-Public Use
  Company Number: ES-WYE-G01358908

PATIENT
  Age: 63 Year
  Sex: Male

DRUGS (7)
  1. TEMSIROLIMUS [Suspect]
     Dosage: 25 MG EVERY
     Route: 042
     Dates: start: 20080328, end: 20080328
  2. ADIRO [Concomitant]
     Dosage: ONE TABLET PER DAY
     Route: 048
     Dates: start: 20071101
  3. SODIUM BICARBONATE [Concomitant]
     Dosage: ONE TABLET PER DAY
     Route: 048
     Dates: start: 20071101
  4. AMLODIPINE [Concomitant]
     Dosage: ONE TABLET PER DAY
     Route: 048
     Dates: start: 20071101, end: 20080321
  5. OMEPRAZOLE [Concomitant]
     Dosage: ONE TABLET PER DAY
     Route: 048
     Dates: start: 20071101
  6. COROPRES [Concomitant]
     Dosage: 1/2 TABLET EVERY 12 HOURS
     Route: 048
     Dates: start: 20071101
  7. PLAVIX [Concomitant]
     Dosage: ONE TABLET PER DAY
     Route: 048
     Dates: start: 20071101

REACTIONS (2)
  - ANGINA PECTORIS [None]
  - TROPONIN INCREASED [None]
